FAERS Safety Report 8099621-7 (Version None)
Quarter: 2012Q1

REPORT INFORMATION
  Report Type: 
  Country: None (occurrence: None)
  Receive Date: 20120126
  Receipt Date: 20120112
  Transmission Date: 20120608
  Serious: Yes (Hospitalization, Other)
  Sender: FDA-Public Use
  Company Number: JPI-P-012238

PATIENT
  Age: 73 Year
  Sex: Female

DRUGS (12)
  1. FUROSEMIDE [Concomitant]
  2. CALCIUM [Concomitant]
  3. DEXTROAMPHETAMINE [Concomitant]
  4. OXYBUTYNIN [Concomitant]
  5. PAROXETINE HYDROCHLORIDE [Concomitant]
  6. XYREM [Suspect]
     Indication: CATAPLEXY
     Dosage: 6 GM (3 GM, 2 IN 1 D), ORAL; 7.5 GM (3.75 GM, 2 IN 1 D), ORAL
     Route: 048
     Dates: start: 20071031, end: 20091001
  7. XYREM [Suspect]
     Indication: CATAPLEXY
     Dosage: 6 GM (3 GM, 2 IN 1 D), ORAL; 7.5 GM (3.75 GM, 2 IN 1 D), ORAL
     Route: 048
     Dates: start: 20091002
  8. ATORVASTATIN [Concomitant]
  9. GABAPENTIN [Concomitant]
  10. PANTOPRAZOLE [Concomitant]
  11. SERTRALINE HYDROCHLORIDE [Concomitant]
  12. VITAMIN D [Concomitant]

REACTIONS (5)
  - IMPAIRED HEALING [None]
  - FALL [None]
  - WRIST FRACTURE [None]
  - BALANCE DISORDER [None]
  - UPPER LIMB FRACTURE [None]
